FAERS Safety Report 9259307 (Version 2)
Quarter: 2013Q2

REPORT INFORMATION
  Report Type: Spontaneous
  Country: DE (occurrence: DE)
  Receive Date: 20130427
  Receipt Date: 20130510
  Transmission Date: 20140414
  Serious: Yes (Other)
  Sender: FDA-Public Use
  Company Number: DE-UCBSA-084179

PATIENT
  Age: 38 Year
  Sex: Female

DRUGS (3)
  1. CIMZIA [Suspect]
     Dosage: UNKNOWN DOSE
  2. PREDNISOLON [Concomitant]
     Route: 048
  3. VIGANTOLETTEN [Concomitant]
     Route: 048

REACTIONS (2)
  - Vulvovaginal mycotic infection [Recovered/Resolved]
  - Rash [Recovering/Resolving]
